FAERS Safety Report 15881464 (Version 4)
Quarter: 2019Q2

REPORT INFORMATION
  Report Type: Spontaneous
  Country: FR (occurrence: FR)
  Receive Date: 20190128
  Receipt Date: 20190412
  Transmission Date: 20190711
  Serious: Yes (Hospitalization)
  Sender: FDA-Public Use
  Company Number: PHHY2019FR014858

PATIENT
  Age: 79 Year
  Sex: Male
  Weight: 68 kg

DRUGS (19)
  1. OGAST [Interacting]
     Active Substance: LANSOPRAZOLE
     Indication: PRODUCT USED FOR UNKNOWN INDICATION
     Dosage: 30 MG, QD
     Route: 048
  2. SOLU-MEDROL [Concomitant]
     Active Substance: METHYLPREDNISOLONE SODIUM SUCCINATE
     Indication: BRONCHITIS
     Dosage: UNK
     Route: 048
  3. FLUOXETINE HYDROCHLORIDE. [Interacting]
     Active Substance: FLUOXETINE HYDROCHLORIDE
     Indication: PRODUCT USED FOR UNKNOWN INDICATION
     Dosage: 20 MG, QD
     Route: 048
  4. PREVISCAN (FLUINDIONE) [Interacting]
     Active Substance: FLUINDIONE
     Indication: ATRIAL FIBRILLATION
  5. KETEK [Interacting]
     Active Substance: TELITHROMYCIN
     Indication: HAEMOPTYSIS
     Dosage: UNK
     Route: 048
  6. PROZAC [Interacting]
     Active Substance: FLUOXETINE HYDROCHLORIDE
     Indication: PRODUCT USED FOR UNKNOWN INDICATION
     Dosage: 20 MG, QD
     Route: 048
     Dates: start: 200608, end: 200608
  7. METHYLPREDNISOLONE. [Concomitant]
     Active Substance: METHYLPREDNISOLONE
     Indication: BRONCHITIS
     Dosage: UNK
     Route: 048
  8. IPRATROPIUM BROMIDE\FENOTEROL HYDROBROMIDE [Concomitant]
     Active Substance: FENOTEROL HYDROBROMIDE\IPRATROPIUM BROMIDE
     Indication: BRONCHITIS
     Dosage: UNK
     Route: 055
  9. PREVISCAN (FLUINDIONE) [Interacting]
     Active Substance: FLUINDIONE
     Indication: TACHYARRHYTHMIA
     Dosage: 15 MG, QD
     Route: 048
  10. FLUINDIONE [Interacting]
     Active Substance: FLUINDIONE
     Indication: ATRIAL FIBRILLATION
     Dosage: 15 MG, QD
     Route: 048
  11. FLUINDIONE [Interacting]
     Active Substance: FLUINDIONE
     Indication: TACHYARRHYTHMIA
  12. BUDESONIDE. [Concomitant]
     Active Substance: BUDESONIDE
     Indication: BRONCHITIS
     Dosage: UNK
     Route: 055
  13. KETEK [Interacting]
     Active Substance: TELITHROMYCIN
     Indication: BRONCHITIS
  14. CLARITHROMYCIN. [Suspect]
     Active Substance: CLARITHROMYCIN
     Indication: PRODUCT USED FOR UNKNOWN INDICATION
     Dosage: UNK
     Route: 048
  15. BRONCHATHIOL [Concomitant]
     Indication: BRONCHITIS
     Dosage: UNK
     Route: 055
  16. PENTOXIFYLLINE. [Interacting]
     Active Substance: PENTOXIFYLLINE
     Indication: PRODUCT USED FOR UNKNOWN INDICATION
     Dosage: 15 MG, QD
     Route: 048
  17. PULMICORT TURBUHALER [Concomitant]
     Active Substance: BUDESONIDE
     Indication: BRONCHITIS
     Dosage: UNK
     Route: 055
  18. DUOVENT [Concomitant]
     Active Substance: FENOTEROL HYDROBROMIDE
     Indication: BRONCHITIS
     Dosage: UNK
     Route: 055
  19. SOLU-MEDROL [Concomitant]
     Active Substance: METHYLPREDNISOLONE SODIUM SUCCINATE
     Indication: BRONCHITIS
     Dosage: UNK
     Route: 048

REACTIONS (6)
  - Overdose [Recovered/Resolved]
  - Prothrombin level decreased [Recovered/Resolved]
  - Haemoptysis [Recovered/Resolved]
  - International normalised ratio increased [Recovered/Resolved]
  - Drug interaction [Recovered/Resolved]
  - Bronchitis [Recovered/Resolved]

NARRATIVE: CASE EVENT DATE: 20060827
